FAERS Safety Report 6545968-2 (Version None)
Quarter: 2010Q1

REPORT INFORMATION
  Report Type: 
  Country: None (occurrence: None)
  Receive Date: 20100121
  Receipt Date: 20100121
  Transmission Date: 20100710
  Serious: Yes (Other)
  Sender: FDA-Public Use
  Company Number: None

PATIENT
  Age: 59 Year
  Sex: Female
  Weight: 65.7716 kg

DRUGS (1)
  1. SIMPLY SLEEP 25 MG TYLENOL [Suspect]
     Indication: SLEEP DISORDER THERAPY
     Dosage: 1 OR 2 PER NIGHT ONCE A DAY PO
     Route: 048
     Dates: start: 20091230, end: 20100114

REACTIONS (2)
  - DIARRHOEA [None]
  - PRODUCT QUALITY ISSUE [None]
